FAERS Safety Report 8559602-3 (Version None)
Quarter: 2012Q2

REPORT INFORMATION
  Report Type: 
  Country: None (occurrence: None)
  Receive Date: 20120418
  Receipt Date: 20100201
  Transmission Date: 20120825
  Serious: Yes (Other)
  Sender: FDA-Public Use
  Company Number: PHEH2010US01814

PATIENT
  Age: 59 Year
  Sex: Female

DRUGS (2)
  1. ACTONEL [Concomitant]
  2. DIOVAN [Suspect]
     Indication: HYPERTENSION
     Dosage: 160 MG, QD, ORAL
     Route: 048

REACTIONS (1)
  - RENAL IMPAIRMENT [None]
